FAERS Safety Report 8987575 (Version 2)
Quarter: 2013Q2

REPORT INFORMATION
  Report Type: Spontaneous
  Country: US (occurrence: US)
  Receive Date: 20121227
  Receipt Date: 20130408
  Transmission Date: 20140414
  Serious: Yes (Hospitalization)
  Sender: FDA-Public Use
  Company Number: US-ALEXION PHARMACEUTICALS INC.-A201000279

PATIENT
  Age: 50 Year
  Sex: Female
  Weight: 65 kg

DRUGS (15)
  1. SOLIRIS 300MG [Suspect]
     Indication: PROPHYLAXIS
     Dosage: 1200 MG, SINGLE
     Route: 042
     Dates: start: 20100215, end: 20100215
  2. SOLIRIS 300MG [Suspect]
     Dosage: 600 MG, SINGLE
     Route: 042
     Dates: start: 20100216, end: 20100216
  3. SOLIRIS 300MG [Suspect]
     Dosage: 600 MG, SINGLE
     Route: 042
     Dates: start: 20100222, end: 20100222
  4. SOLIRIS 300MG [Suspect]
     Dosage: 600 MG, SINGLE
     Route: 042
     Dates: start: 20100301, end: 20100301
  5. CELLCEPT [Concomitant]
     Dosage: 750 MG, BID
     Route: 048
  6. DARVOCET-N [Concomitant]
     Indication: PAIN
     Dosage: 1 TABLET BY MOUTH, Q4H PRN
     Route: 048
  7. NORMODYNE [Concomitant]
     Dosage: 100 MG, BID (HOLD DOSE IF SBP{100 OR HR{55)
     Route: 048
  8. MULTIVITAMIN [Concomitant]
     Dosage: 1 TAB, QD
     Route: 048
  9. NORVASC [Concomitant]
     Dosage: 5 MG, BID
     Route: 048
  10. PREDNISONE [Concomitant]
     Dosage: 25 MG, AS DIRECTED BY PRESCRIBER; PER TAPER
     Route: 048
  11. PROTONIX [Concomitant]
     Dosage: 40 MG, QD
     Route: 048
  12. ZOCOR [Concomitant]
     Dosage: 10 MG, QD (QHS)
     Route: 048
  13. PROGRAF [Concomitant]
     Dosage: 3 MG, QD (QAM)
  14. PROGRAF [Concomitant]
     Dosage: 4 MG, QD (QPM)
  15. VALCYTE [Concomitant]
     Dosage: 450 MG, QD
     Route: 048

REACTIONS (1)
  - Transplant rejection [Unknown]
